FAERS Safety Report 7771948-5 (Version None)
Quarter: 2011Q3

REPORT INFORMATION
  Report Type: 
  Country: None (occurrence: None)
  Receive Date: 20110922
  Receipt Date: 20100827
  Transmission Date: 20111222
  Serious: No
  Sender: FDA-Public Use
  Company Number: US-ASTRAZENECA-2007UW16200

PATIENT
  Age: 16442 Day
  Sex: Male
  Weight: 98.9 kg

DRUGS (12)
  1. NAVANE [Concomitant]
  2. COZAAR [Concomitant]
     Dates: start: 20070227
  3. RISPERDAL [Concomitant]
     Indication: BIPOLAR DISORDER
     Dates: start: 20040101
  4. RISPERDAL [Concomitant]
     Dates: start: 20050101
  5. ABILIFY [Concomitant]
  6. THORAZINE [Concomitant]
  7. SEROQUEL [Suspect]
     Indication: SLEEP DISORDER
     Dosage: 100 MG TO 1600 MG
     Route: 048
     Dates: start: 20050805
  8. GEODON [Concomitant]
  9. SEROQUEL [Suspect]
     Indication: BIPOLAR DISORDER
     Dosage: 100 MG TO 1600 MG
     Route: 048
     Dates: start: 20050805
  10. ZYPREXA [Concomitant]
     Indication: BIPOLAR DISORDER
     Dates: start: 20050627, end: 20050906
  11. AMITRIPTYLINE HCL [Concomitant]
     Dates: start: 20050616
  12. HALDOL [Concomitant]

REACTIONS (4)
  - TYPE 2 DIABETES MELLITUS [None]
  - HYPERLIPIDAEMIA [None]
  - BLOOD CHOLESTEROL INCREASED [None]
  - OBESITY [None]
